FAERS Safety Report 4631630-X (Version None)
Quarter: 2005Q2

REPORT INFORMATION
  Report Type: 
  Country: None (occurrence: None)
  Receive Date: 20050407
  Receipt Date: 20050329
  Transmission Date: 20051028
  Serious: Yes (Death, Hospitalization)
  Sender: FDA-Public Use
  Company Number: 2005-02-0518

PATIENT
  Age: 40 Year
  Sex: Female

DRUGS (4)
  1. CELESTONE [Suspect]
     Indication: BRONCHITIS
     Dosage: 4 MG QD ORAL
     Route: 048
     Dates: start: 20050121, end: 20050124
  2. ACETAMINOPHEN [Suspect]
     Indication: PYREXIA
     Dosage: 1 GM PRN ORAL
     Route: 048
     Dates: start: 20050121, end: 20050127
  3. AMBROXOL ORAL,                     NOT OTHERWISE SPECIFIED [Suspect]
     Indication: BRONCHITIS
     Dosage: 1 SPOON BID ORAL
     Route: 048
     Dates: start: 20050121, end: 20050127
  4. KETEK [Suspect]
     Indication: BRONCHITIS
     Dosage: 2 TABS QD ORAL
     Route: 048
     Dates: start: 20050121, end: 20050127

REACTIONS (6)
  - CARDIO-RESPIRATORY ARREST [None]
  - CHEST PAIN [None]
  - DYSPEPSIA [None]
  - SUDDEN DEATH [None]
  - VENTRICULAR FIBRILLATION [None]
  - VENTRICULAR TACHYCARDIA [None]
